FAERS Safety Report 5960526-6 (Version None)
Quarter: 2008Q4

REPORT INFORMATION
  Report Type: 
  Country: None (occurrence: None)
  Receive Date: 20081120
  Receipt Date: 20080319
  Transmission Date: 20090506
  Serious: No
  Sender: FDA-Public Use
  Company Number: US-ABBOTT-08P-163-0443418-00

PATIENT
  Sex: Female
  Weight: 74.91 kg

DRUGS (3)
  1. BIAXIN [Suspect]
     Indication: EAR INFECTION
     Route: 048
     Dates: start: 20080201
  2. ESZOPICLONE [Suspect]
     Indication: INSOMNIA
     Route: 048
     Dates: start: 20080201, end: 20080201
  3. LEVOTHYROXINE SODIUM [Concomitant]
     Indication: DRUG USE FOR UNKNOWN INDICATION

REACTIONS (2)
  - CHROMATURIA [None]
  - DYSGEUSIA [None]
